FAERS Safety Report 7814212-8 (Version None)
Quarter: 2011Q4

REPORT INFORMATION
  Report Type: 
  Country: None (occurrence: None)
  Receive Date: 20111014
  Receipt Date: 20111004
  Transmission Date: 20120403
  Serious: Yes (Hospitalization)
  Sender: FDA-Public Use
  Company Number: JP-SANOFI-AVENTIS-200911125JP

PATIENT
  Age: 71 Year
  Sex: Male
  Weight: 73 kg

DRUGS (9)
  1. OLOPATADINE HCL [Concomitant]
     Dates: end: 20070315
  2. ALLOPURINOL [Concomitant]
     Dates: end: 20070315
  3. ARAVA [Suspect]
     Indication: RHEUMATOID ARTHRITIS
     Route: 048
     Dates: start: 20060817, end: 20061205
  4. URALYT [Concomitant]
     Dates: end: 20070315
  5. AZULFIDINE [Concomitant]
     Indication: RHEUMATOID ARTHRITIS
     Route: 048
  6. FLIVAS [Concomitant]
     Dates: end: 20070315
  7. S. ADCHNON [Concomitant]
     Dates: end: 20070315
  8. COMELIAN [Concomitant]
     Dates: end: 20070315
  9. ALL OTHER THERAPEUTIC PRODUCTS [Concomitant]
     Dates: end: 20070315

REACTIONS (3)
  - ASPARTATE AMINOTRANSFERASE INCREASED [None]
  - ALANINE AMINOTRANSFERASE INCREASED [None]
  - HEPATIC FUNCTION ABNORMAL [None]
